FAERS Safety Report 16895356 (Version 1)
Quarter: 2019Q4

REPORT INFORMATION
  Report Type: Spontaneous
  Country: US (occurrence: US)
  Receive Date: 20191008
  Receipt Date: 20191008
  Transmission Date: 20200122
  Serious: No
  Sender: FDA-Public Use
  Company Number: US-INDIVIOR US-INDV-120722-2019

PATIENT
  Sex: Female

DRUGS (3)
  1. BUPRENORPHINE TABLET [Suspect]
     Active Substance: BUPRENORPHINE
     Indication: DRUG DEPENDENCE
     Dosage: 20 MILLIGRAM, QD
     Route: 065
  2. BUPRENORPHINE TABLET [Suspect]
     Active Substance: BUPRENORPHINE
     Dosage: 20 MILLIGRAM, QD
     Route: 065
  3. BUPRENORPHINE TABLET [Suspect]
     Active Substance: BUPRENORPHINE
     Dosage: 8 MILLIGRAM, QD
     Route: 065

REACTIONS (2)
  - Emotional distress [Unknown]
  - Drug dependence [Unknown]
